FAERS Safety Report 5512125-8 (Version None)
Quarter: 2007Q4

REPORT INFORMATION
  Report Type: 
  Country: None (occurrence: None)
  Receive Date: 20071109
  Receipt Date: 20071030
  Transmission Date: 20080405
  Serious: Yes (Hospitalization)
  Sender: FDA-Public Use
  Company Number: PL-PFIZER INC-2007091413

PATIENT
  Sex: Female
  Weight: 61 kg

DRUGS (9)
  1. PH-797,804 [Concomitant]
     Indication: RHEUMATOID ARTHRITIS
     Dosage: DAILY DOSE:10MG
     Route: 048
     Dates: start: 20070730, end: 20071010
  2. FERROUS FUMARATE [Concomitant]
     Route: 048
  3. ALENDRONATE SODIUM [Suspect]
     Route: 048
     Dates: start: 20060424, end: 20071010
  4. PANTOPRAZOLE SODIUM [Suspect]
     Route: 048
     Dates: start: 20070829, end: 20071010
  5. SOTALOL HYDROCHLORIDE [Concomitant]
     Route: 048
     Dates: start: 20040730, end: 20071010
  6. QUINAPRIL HCL [Concomitant]
     Route: 048
     Dates: start: 20040730, end: 20071010
  7. DICLOFENAC SODIUM [Concomitant]
     Route: 048
     Dates: start: 19960916, end: 20071010
  8. BUFLOMEDIL [Concomitant]
     Route: 048
     Dates: start: 20060626, end: 20071010
  9. TIMONACIC [Concomitant]
     Route: 048
     Dates: start: 20070528, end: 20071010

REACTIONS (4)
  - GASTRITIS [None]
  - GASTROINTESTINAL HAEMORRHAGE [None]
  - INTESTINAL FUNCTIONAL DISORDER [None]
  - MYOCARDIAL INFARCTION [None]
